FAERS Safety Report 14290422 (Version 1)
Quarter: 2017Q4

REPORT INFORMATION
  Report Type: Spontaneous
  Country: US (occurrence: US)
  Receive Date: 20171215
  Receipt Date: 20171215
  Transmission Date: 20180321
  Serious: No
  Sender: FDA-Public Use
  Company Number: US-GUERBET-US-20170086

PATIENT
  Age: 31 Year
  Sex: Female

DRUGS (1)
  1. OPTIRAY 320 [Suspect]
     Active Substance: IOVERSOL
     Indication: COMPUTERISED TOMOGRAM
     Route: 042
     Dates: start: 20170217, end: 20170217

REACTIONS (5)
  - Throat irritation [Recovered/Resolved]
  - Urticaria [Recovered/Resolved]
  - Upper respiratory tract congestion [Recovered/Resolved]
  - Sinus congestion [Recovered/Resolved]
  - Cough [Recovered/Resolved]

NARRATIVE: CASE EVENT DATE: 20170217
